FAERS Safety Report 5200456-0 (Version None)
Quarter: 2007Q1

REPORT INFORMATION
  Report Type: 
  Country: None (occurrence: None)
  Receive Date: 20070105
  Receipt Date: 20061227
  Transmission Date: 20070707
  Serious: Yes (Hospitalization, Disabling)
  Sender: FDA-Public Use
  Company Number: DE-MERCK-0612DEU00018

PATIENT
  Age: 58 Year
  Sex: Female

DRUGS (2)
  1. FOSAMAX [Suspect]
     Indication: OSTEOPOROSIS
     Route: 048
     Dates: start: 20020101
  2. FOSAMAX [Suspect]
     Route: 048
     Dates: start: 20030908, end: 20040101

REACTIONS (9)
  - ADVERSE EVENT [None]
  - CYSTITIS [None]
  - GASTRITIS [None]
  - JAW DISORDER [None]
  - ORAL MUCOSAL DISORDER [None]
  - ORAL PAIN [None]
  - PAIN IN JAW [None]
  - PURULENCE [None]
  - RESPIRATORY TRACT INFECTION [None]
